FAERS Safety Report 9747533 (Version 1)
Quarter: 2013Q4

REPORT INFORMATION
  Report Type: Spontaneous
  Country: US (occurrence: None)
  Receive Date: 20131205
  Receipt Date: 20131205
  Transmission Date: 20140711
  Serious: Yes (Other)
  Sender: FDA-Public Use
  Company Number: 001635474A

PATIENT
  Age: 12 Year
  Sex: Female

DRUGS (3)
  1. PROACTIV+ SKIN SMOOTHING EXFOLIATOR [Suspect]
     Indication: ACNE
     Dosage: TWICE DAILY DERMAL
     Dates: start: 20131107, end: 20131109
  2. PROACTIV PORE CLEANSING SYSTEM [Suspect]
     Indication: ACNE
     Dosage: ONCE DAILY DERMAL
     Dates: start: 20131107, end: 20131109
  3. PROACTIV+ COMPLEXION PERFECTING HYDRATOR [Suspect]
     Indication: ACNE
     Dosage: ONCE DAILY DERMAL
     Dates: start: 20131107, end: 20131109

REACTIONS (4)
  - Erythema [None]
  - Urticaria [None]
  - Pruritus [None]
  - Burning sensation [None]
